FAERS Safety Report 5475464-5 (Version None)
Quarter: 2007Q4

REPORT INFORMATION
  Report Type: 
  Country: None (occurrence: None)
  Receive Date: 20071003
  Receipt Date: 20070921
  Transmission Date: 20080405
  Serious: Yes (Other)
  Sender: FDA-Public Use
  Company Number: HQWYE340815FEB05

PATIENT
  Sex: Female

DRUGS (2)
  1. PREMPRO [Suspect]
     Indication: HORMONE REPLACEMENT THERAPY
     Dosage: UNKNOWN
     Route: 048
     Dates: start: 19991119, end: 20020906
  2. DEPO-PROVERA [Suspect]
     Dosage: UNKNOWN
     Route: 030
     Dates: start: 19940101, end: 19991109

REACTIONS (1)
  - BREAST CANCER [None]
